FAERS Safety Report 20909410 (Version 2)
Quarter: 2022Q2

REPORT INFORMATION
  Report Type: Spontaneous
  Country: CO (occurrence: CO)
  Receive Date: 20220603
  Receipt Date: 20220616
  Transmission Date: 20220721
  Serious: Yes (Other)
  Sender: FDA-Public Use
  Company Number: CO-AMGEN-COLSP2022093921

PATIENT
  Age: 53 Year
  Sex: Female

DRUGS (7)
  1. BEVACIZUMAB [Suspect]
     Active Substance: BEVACIZUMAB
     Indication: Colon cancer stage IV
     Dosage: 215 MILLIGRAM, QD
     Route: 040
     Dates: start: 20220131
  2. NEULASTA [Suspect]
     Active Substance: PEGFILGRASTIM
     Indication: Colon cancer stage IV
     Dosage: 6 MILLIGRAM, QD
     Route: 058
     Dates: start: 20220131
  3. LEUCOVORIN CALCIUM [Concomitant]
     Active Substance: LEUCOVORIN CALCIUM
     Indication: Colon cancer stage IV
     Dosage: 100 MILLIGRAM, QD
     Route: 040
     Dates: start: 20220131
  4. FLUOROURACIL [Concomitant]
     Active Substance: FLUOROURACIL
     Indication: Colon cancer stage IV
     Dosage: 220 MILLIGRAM, QD
     Route: 040
     Dates: start: 20220131
  5. OXALIPLATIN [Concomitant]
     Active Substance: OXALIPLATIN
     Indication: Colon cancer stage IV
     Dosage: 500 MILLIGRAM, QD
     Route: 042
     Dates: start: 20220131
  6. PALONOSETRON [Concomitant]
     Active Substance: PALONOSETRON
     Indication: Colon cancer stage IV
     Dosage: 50 MILLIGRAM, QD
     Route: 042
     Dates: start: 20220131
  7. DEXAMETHASONE PHOSPHATE [Concomitant]
     Active Substance: DEXAMETHASONE PHOSPHATE
     Indication: Colon cancer stage IV
     Dosage: 50 MILLIGRAM, QD
     Route: 030
     Dates: start: 20220131

REACTIONS (1)
  - Neuropathy peripheral [Not Recovered/Not Resolved]

NARRATIVE: CASE EVENT DATE: 20220519
